FAERS Safety Report 8022454-4 (Version None)
Quarter: 2011Q4

REPORT INFORMATION
  Report Type: 
  Country: None (occurrence: None)
  Receive Date: 20111229
  Receipt Date: 20111215
  Transmission Date: 20120403
  Serious: Yes (Hospitalization)
  Sender: FDA-Public Use
  Company Number: 1000022934

PATIENT
  Age: 71 Year
  Sex: Female

DRUGS (6)
  1. ARICEPT [Concomitant]
  2. LANDSEN (CLONAZEPAM) (CLONAZEPAM) [Concomitant]
  3. MEMANTINE HYDROCHLORIDE [Suspect]
     Indication: DEMENTIA ALZHEIMER'S TYPE
     Dosage: ORAL, 15 MG (15 MG, 1 IN 1 D),ORAL
     Route: 048
     Dates: end: 20110802
  4. TETRAMIDE (MIANSERIN HYDROCHLORIDE) (MIANSERIN HYDROCHLORIDE) [Concomitant]
  5. MEMANTINE HYDROCHLORIDE [Suspect]
     Indication: DEMENTIA ALZHEIMER'S TYPE
     Dosage: 20 MG (20 MG, 1 IN 1 D), ORAL
     Route: 048
     Dates: start: 20110803, end: 20110815
  6. ZOLOFT [Concomitant]

REACTIONS (7)
  - UROBILINOGEN URINE [None]
  - EATING DISORDER [None]
  - URINE KETONE BODY PRESENT [None]
  - UROBILINOGEN URINE INCREASED [None]
  - BLOOD URINE PRESENT [None]
  - POLLAKIURIA [None]
  - RESTLESSNESS [None]
